FAERS Safety Report 21161223 (Version 1)
Quarter: 2022Q3

REPORT INFORMATION
  Report Type: Spontaneous
  Country: US (occurrence: None)
  Receive Date: 20220802
  Receipt Date: 20220802
  Transmission Date: 20221027
  Serious: Yes (Hospitalization)
  Sender: FDA-Public Use
  Company Number: None

PATIENT
  Sex: Male

DRUGS (3)
  1. DARATUMUMAB\HYALURONIDASE-FIHJ [Suspect]
     Active Substance: DARATUMUMAB\HYALURONIDASE-FIHJ
     Indication: Drug therapy
     Dates: end: 20220511
  2. DEXAMETHASONE [Suspect]
     Active Substance: DEXAMETHASONE
     Dates: end: 20220511
  3. LENALIDOMIDE [Suspect]
     Active Substance: LENALIDOMIDE
     Dates: end: 20220511

REACTIONS (11)
  - Urinary tract infection [None]
  - Pseudomonas test positive [None]
  - Hyperhidrosis [None]
  - Chills [None]
  - Arthralgia [None]
  - Chest pain [None]
  - Rotator cuff tear arthropathy [None]
  - Testicular pain [None]
  - Testicular swelling [None]
  - Orchitis [None]
  - Sepsis [None]

NARRATIVE: CASE EVENT DATE: 20220722
